FAERS Safety Report 7023025-9 (Version None)
Quarter: 2010Q3

REPORT INFORMATION
  Report Type: 
  Country: None (occurrence: None)
  Receive Date: 20100930
  Receipt Date: 20100921
  Transmission Date: 20110219
  Serious: Yes (Life-Threatening)
  Sender: FDA-Public Use
  Company Number: BR-BAYER-201018200LA

PATIENT
  Age: 42 Year
  Sex: Female
  Weight: 73 kg

DRUGS (5)
  1. MIRENA [Suspect]
     Indication: MENSTRUAL DISORDER
     Dosage: FREQUENCY: CONTINUOUS
     Route: 015
     Dates: start: 20100812, end: 20100901
  2. IBUPROFEN [Concomitant]
     Indication: PAIN
     Dosage: 2 TABLETS PER DAY
     Route: 048
     Dates: start: 20100812, end: 20100818
  3. AMOXICILLIN [Concomitant]
     Indication: SINUSITIS
     Dosage: 2 TABLETS PER DAY
     Route: 048
     Dates: start: 20100815, end: 20100821
  4. ALLEGRA [Concomitant]
     Indication: SINUSITIS
     Dosage: 2 TABLETS PER DAY
     Route: 048
     Dates: start: 20100815, end: 20100821
  5. NIMESULIDE [Concomitant]
     Indication: SINUSITIS
     Dosage: 2 TABLETS PER DAY
     Route: 048
     Dates: start: 20100815, end: 20100821

REACTIONS (13)
  - ABDOMINAL PAIN [None]
  - ANAEMIA [None]
  - COITAL BLEEDING [None]
  - DEVICE DISLOCATION [None]
  - DIZZINESS [None]
  - DYSPAREUNIA [None]
  - EYE SWELLING [None]
  - HEADACHE [None]
  - MENSTRUAL DISORDER [None]
  - SWELLING FACE [None]
  - VISION BLURRED [None]
  - VISUAL IMPAIRMENT [None]
  - WEIGHT INCREASED [None]
